FAERS Safety Report 5330202-1 (Version None)
Quarter: 2007Q2

REPORT INFORMATION
  Report Type: 
  Country: None (occurrence: None)
  Receive Date: 20070521
  Receipt Date: 20070508
  Transmission Date: 20071010
  Serious: Yes (Death, Hospitalization)
  Sender: FDA-Public Use
  Company Number: IN-PFIZER INC-2007035677

PATIENT
  Sex: Male
  Weight: 76 kg

DRUGS (7)
  1. SU-011,248 [Suspect]
     Indication: RENAL CELL CARCINOMA STAGE UNSPECIFIED
     Route: 048
  2. ESOMEPRAZOLE MAGNESIUM [Concomitant]
     Route: 042
     Dates: start: 20070428, end: 20070503
  3. LEVOTHYROXINE SODIUM [Concomitant]
     Route: 048
     Dates: start: 20061102
  4. LATANOPROST [Concomitant]
     Dates: start: 20070428
  5. PILOCARPINE [Concomitant]
     Dates: start: 20070428
  6. TOBRAMYCIN [Concomitant]
     Dates: start: 20070428
  7. LEVOFLOXACIN [Concomitant]
     Route: 042
     Dates: start: 20070428, end: 20070503

REACTIONS (1)
  - DYSPNOEA [None]
